FAERS Safety Report 9478886 (Version 1)
Quarter: 2013Q3

REPORT INFORMATION
  Report Type: Spontaneous
  Country: US (occurrence: US)
  Receive Date: 20130827
  Receipt Date: 20130827
  Transmission Date: 20140515
  Serious: Yes (Other)
  Sender: FDA-Public Use
  Company Number: US-BAYER-2013-102432

PATIENT
  Age: 59 Year
  Sex: Female

DRUGS (16)
  1. BETASERON [Suspect]
     Dosage: 0.25 MG, QOD
     Route: 058
  2. SINGULAIR [Concomitant]
     Dosage: 10 MG, UNK
  3. CELEBREX [Concomitant]
     Dosage: 100 MG, UNK
  4. SOMA [Concomitant]
     Dosage: 350 MG, UNK
  5. SERTRALINE [Concomitant]
     Dosage: 50 MG, UNK
  6. ZYRTEC [Concomitant]
     Dosage: 10 MG, UNK
  7. GABAPENTIN [Concomitant]
     Dosage: 300 MG, UNK
  8. OXYBUTYNIN [Concomitant]
     Dosage: 10 MG, UNK
  9. ACTIVELLA [Concomitant]
  10. CRESTOR [Concomitant]
     Dosage: 20 MG, UNK
  11. SUDAFED [Concomitant]
     Dosage: 30 MG, UNK
  12. CLARITIN [Concomitant]
     Dosage: 10 MG, UNK
  13. MUCINEX [Concomitant]
     Dosage: 600 MG, UNK
  14. CALCIUM D [Concomitant]
  15. PULMICORT [Concomitant]
     Dosage: 200 ?G, UNK
  16. CICLESONIDE [Concomitant]
     Dosage: 37 MCG

REACTIONS (1)
  - Bronchitis [Unknown]
